FAERS Safety Report 9105372 (Version 1)
Quarter: 2013Q1

REPORT INFORMATION
  Report Type: Spontaneous
  Country: CA (occurrence: CA)
  Receive Date: 20130220
  Receipt Date: 20130220
  Transmission Date: 20140127
  Serious: Yes (Other)
  Sender: FDA-Public Use
  Company Number: CA-JNJFOC-20130209886

PATIENT
  Sex: Male
  Weight: 71.67 kg

DRUGS (2)
  1. NICORETTE INHALER [Suspect]
     Indication: SMOKING CESSATION THERAPY
     Route: 055
  2. NICORETTE INHALER [Suspect]
     Indication: SMOKING CESSATION THERAPY
     Dosage: 9-10 OR 8-12 CARTRIDGES A DAY
     Route: 055

REACTIONS (4)
  - Nicotine dependence [Unknown]
  - Intentional drug misuse [Unknown]
  - Mass [Not Recovered/Not Resolved]
  - Product packaging quantity issue [Unknown]
